FAERS Safety Report 23521926 (Version 1)
Quarter: 2024Q1

REPORT INFORMATION
  Report Type: Spontaneous
  Country: CA (occurrence: CA)
  Receive Date: 20240214
  Receipt Date: 20240214
  Transmission Date: 20240410
  Serious: Yes (Hospitalization, Other)
  Sender: FDA-Public Use
  Company Number: CA-HLS-202400412

PATIENT
  Age: 29 Year
  Sex: Male

DRUGS (23)
  1. ARIPIPRAZOLE [Suspect]
     Active Substance: ARIPIPRAZOLE
     Indication: Psychotic disorder
     Dosage: NOT SPECIFIED DOSAGE FORM
     Route: 048
  2. CLOPIDOGREL [Concomitant]
     Active Substance: CLOPIDOGREL BISULFATE
     Indication: Antiplatelet therapy
     Dosage: 1 EVERY 1 DAYS?AMOUNT: 75 MILLIGRAM?TABLETS DOSAGE FORM
     Route: 065
  3. CLOZAPINE [Suspect]
     Active Substance: CLOZAPINE
     Indication: Psychotic disorder
     Dosage: 1 EVERY 1 DAYS?AMOUNT: 200 MILLIGRAM?TABLETS DOSAGE FORM
     Route: 065
  4. CLOZAPINE [Suspect]
     Active Substance: CLOZAPINE
     Indication: Product used for unknown indication
     Dosage: 1 EVERY 1 DAYS?AMOUNT: 200 MILLIGRAM?TABLETS DOSAGE FORM
     Route: 065
  5. CLOZAPINE [Suspect]
     Active Substance: CLOZAPINE
     Indication: Psychotic disorder
     Dosage: 1 EVERY 1 DAYS?AMOUNT: 400 MILLIGRAM
     Route: 065
  6. CLOZAPINE [Suspect]
     Active Substance: CLOZAPINE
     Indication: Product used for unknown indication
     Dosage: 1 EVERY 1 DAYS?AMOUNT: 400 MILLIGRAM
     Route: 065
  7. CLOZAPINE [Suspect]
     Active Substance: CLOZAPINE
     Indication: Psychotic disorder
     Dosage: 1 EVERY 1 DAYS?AMOUNT: 450 MILLIGRAM
     Route: 065
  8. CLOZAPINE [Suspect]
     Active Substance: CLOZAPINE
     Indication: Product used for unknown indication
     Dosage: 1 EVERY 1 DAYS?AMOUNT: 450 MILLIGRAM
     Route: 065
  9. DIAZEPAM [Suspect]
     Active Substance: DIAZEPAM
     Indication: Agitation
     Route: 065
  10. DIAZEPAM [Suspect]
     Active Substance: DIAZEPAM
     Indication: Akathisia
     Route: 065
  11. DIAZEPAM [Suspect]
     Active Substance: DIAZEPAM
     Indication: Agitation
     Dosage: NOT SPECIFIED DOSAGE FORM
     Route: 065
  12. DIAZEPAM [Suspect]
     Active Substance: DIAZEPAM
     Indication: Akathisia
     Dosage: NOT SPECIFIED DOSAGE FORM
     Route: 065
  13. LURASIDONE HYDROCHLORIDE [Suspect]
     Active Substance: LURASIDONE HYDROCHLORIDE
     Indication: Psychotic disorder
     Dosage: AMOUNT: 160 MILLIGRAM
     Route: 065
  14. LURASIDONE HYDROCHLORIDE [Suspect]
     Active Substance: LURASIDONE HYDROCHLORIDE
     Indication: Product used for unknown indication
     Dosage: AMOUNT: 160 MILLIGRAM
     Route: 065
  15. LURASIDONE HYDROCHLORIDE [Suspect]
     Active Substance: LURASIDONE HYDROCHLORIDE
     Indication: Psychotic disorder
     Dosage: AMOUNT: 80 MILLIGRAM?THERAPY DURATION: 92 DAYS
     Route: 065
  16. LURASIDONE HYDROCHLORIDE [Suspect]
     Active Substance: LURASIDONE HYDROCHLORIDE
     Indication: Product used for unknown indication
     Dosage: AMOUNT: 80 MILLIGRAM?THERAPY DURATION: 92 DAYS
     Route: 065
  17. OLANZAPINE [Suspect]
     Active Substance: OLANZAPINE
     Indication: Psychotic disorder
     Dosage: 1 EVERY 1 DAYS?AMOUNT: 20 MILLIGRAM?NOT SPECIFIED DOSAGE FORM
     Route: 065
  18. OMEPRAZOLE [Concomitant]
     Active Substance: OMEPRAZOLE
     Indication: Product used for unknown indication
     Dosage: 1 EVERY 1 DAYS?AMOUNT: 20 MILLIGRAM?NOT SPECIFIED DOSAGE FORM
     Route: 065
  19. PALIPERIDONE [Suspect]
     Active Substance: PALIPERIDONE
     Indication: Psychotic disorder
     Route: 065
  20. PENTOXIFYLLINE [Suspect]
     Active Substance: PENTOXIFYLLINE
     Indication: Thromboangiitis obliterans
     Dosage: AMOUNT: 400 MILLIGRAM?NOT SPECIFIED DOSAGE FORM
     Route: 065
  21. RISPERIDONE [Suspect]
     Active Substance: RISPERIDONE
     Indication: Psychotic disorder
     Dosage: NOT SPECIFIED DOSAGE FORM
     Route: 048
  22. ROSUVASTATIN [Concomitant]
     Active Substance: ROSUVASTATIN
     Indication: Product used for unknown indication
     Dosage: 1 EVERY 1 DAYS?AMOUNT: 10 MILLIGRAM?NOT SPECIFIED DOSAGE FORM
     Route: 065
  23. ZUCLOPENTHIXOL DECANOATE [Suspect]
     Active Substance: ZUCLOPENTHIXOL DECANOATE
     Indication: Psychotic disorder
     Route: 030

REACTIONS (6)
  - Agitation [Unknown]
  - Akathisia [Unknown]
  - Arrhythmia [Unknown]
  - Drug ineffective [Unknown]
  - Intentional product misuse [Unknown]
  - Sedation complication [Unknown]
